FAERS Safety Report 18127281 (Version 2)
Quarter: 2020Q3

REPORT INFORMATION
  Report Type: Report from Study
  Country: GB (occurrence: GB)
  Receive Date: 20200810
  Receipt Date: 20200827
  Transmission Date: 20201103
  Serious: Yes (Hospitalization, Other)
  Sender: FDA-Public Use
  Company Number: GB-GILEAD-2020-0488555

PATIENT
  Sex: Female

DRUGS (1)
  1. SOFOSBUVIR W/VELPATASVIR [Suspect]
     Active Substance: SOFOSBUVIR\VELPATASVIR
     Indication: HIV INFECTION
     Dosage: UNK, QD
     Route: 065

REACTIONS (5)
  - Liver disorder [Recovering/Resolving]
  - Off label use [Not Recovered/Not Resolved]
  - Pulmonary oedema [Recovering/Resolving]
  - Renal impairment [Recovering/Resolving]
  - Transfusion [Recovered/Resolved]
